FAERS Safety Report 5075730-1 (Version None)
Quarter: 2006Q3

REPORT INFORMATION
  Report Type: 
  Country: None (occurrence: None)
  Receive Date: 20060809
  Receipt Date: 20060725
  Transmission Date: 20061208
  Serious: Yes (Hospitalization)
  Sender: FDA-Public Use
  Company Number: 2006CG01276

PATIENT
  Age: 26102 Day
  Sex: Male

DRUGS (8)
  1. NEXIUM [Suspect]
     Route: 048
     Dates: start: 20060518, end: 20060626
  2. FLAGYL [Suspect]
     Indication: LUNG ABSCESS
     Route: 042
     Dates: start: 20060518, end: 20060622
  3. TAZOCILLINE [Suspect]
     Indication: LUNG ABSCESS
     Dosage: 4 G + 500 MG QID
     Route: 042
     Dates: start: 20060518, end: 20060622
  4. VANCOMYCIN [Suspect]
     Indication: LUNG ABSCESS
     Route: 042
     Dates: start: 20060518, end: 20060622
  5. ASPIRIN [Concomitant]
  6. NOVORAPID [Concomitant]
     Indication: DIABETES MELLITUS
     Dates: start: 20060518, end: 20060602
  7. FRAGMIN [Concomitant]
     Dates: start: 20060518
  8. LANTUS [Concomitant]
     Indication: DIABETES MELLITUS
     Dates: start: 20060603

REACTIONS (5)
  - DERMATITIS BULLOUS [None]
  - DRUG ERUPTION [None]
  - HERPES ZOSTER [None]
  - PETECHIAE [None]
  - PYREXIA [None]
